FAERS Safety Report 7556647-7 (Version None)
Quarter: 2011Q2

REPORT INFORMATION
  Report Type: 
  Country: None (occurrence: None)
  Receive Date: 20110610
  Receipt Date: 20110530
  Transmission Date: 20111010
  Serious: Yes (Death)
  Sender: FDA-Public Use
  Company Number: TR-JNJFOC-20110512061

PATIENT
  Age: 62 Year
  Sex: Male

DRUGS (4)
  1. DEPAKIN (VALPROATE SODIUM) [Concomitant]
  2. DACOGEN [Suspect]
     Indication: REFRACTORY ANAEMIA WITH AN EXCESS OF BLASTS
     Dosage: 20 MG/M2, INTRATRANRNIG  MYELODYSPLASTIC SYNDROME REFRACTORY ANAEMIA WITH AN EXCESS OF BLASTS
  3. DACOGEN [Suspect]
     Indication: MYELODYSPLASTIC SYNDROME
     Dosage: 20 MG/M2, INTRATRANRNIG  MYELODYSPLASTIC SYNDROME REFRACTORY ANAEMIA WITH AN EXCESS OF BLASTS
  4. GRANISETRON (GRANISETRON) [Concomitant]

REACTIONS (2)
  - ARRHYTHMIA [None]
  - CARDIAC ARREST [None]
